FAERS Safety Report 8740604 (Version 2)
Quarter: 2012Q4

REPORT INFORMATION
  Report Type: 
  Country: US (occurrence: US)
  Receive Date: 20120823
  Receipt Date: 20121022
  Transmission Date: 20130627
  Serious: No
  Sender: FDA-Public Use
  Company Number: US-PFIZER INC-2012204412

PATIENT
  Age: 55 Year
  Sex: Female
  Weight: 112 kg

DRUGS (4)
  1. GABAPENTIN [Suspect]
     Indication: NEUROPATHY PERIPHERAL
     Dosage: 100 mg, UNK
     Route: 048
     Dates: start: 2010
  2. GABAPENTIN [Suspect]
     Dosage: 400 mg, 4x/day
     Route: 048
  3. GABAPENTIN [Suspect]
     Dosage: 600 mg, 3x/day
     Route: 048
  4. LEVOTHROID [Concomitant]
     Indication: HYPERTHYROIDISM
     Dosage: UNK

REACTIONS (5)
  - Musculoskeletal stiffness [Unknown]
  - Burning sensation [Unknown]
  - Limb discomfort [Unknown]
  - Furuncle [Unknown]
  - Pain [Unknown]
